FAERS Safety Report 23923290 (Version 3)
Quarter: 2025Q3

REPORT INFORMATION
  Report Type: Report from Study
  Country: CA (occurrence: CA)
  Receive Date: 20240531
  Receipt Date: 20250729
  Transmission Date: 20251020
  Serious: Yes (Other)
  Sender: ABBVIE
  Company Number: CA-ABBVIE-5781952

PATIENT
  Age: 19 Year
  Sex: Female

DRUGS (1)
  1. RINVOQ [Suspect]
     Active Substance: UPADACITINIB
     Indication: Crohn^s disease
     Dosage: LAST ADMIN DATE 2024
     Route: 048
     Dates: start: 20240311

REACTIONS (1)
  - Ileocaecal resection [Unknown]

NARRATIVE: CASE EVENT DATE: 20240524
